FAERS Safety Report 24667131 (Version 1)
Quarter: 2024Q4

REPORT INFORMATION
  Report Type: Spontaneous
  Country: CN (occurrence: CN)
  Receive Date: 20241126
  Receipt Date: 20241126
  Transmission Date: 20250115
  Serious: Yes (Other)
  Sender: AMERICAN REGENT
  Company Number: CN-AMERICAN REGENT INC-2024004378

PATIENT
  Age: 46 Year
  Sex: Female
  Weight: 60 kg

DRUGS (1)
  1. FERINJECT [Suspect]
     Active Substance: FERRIC CARBOXYMALTOSE
     Indication: Anaemia
     Dosage: DILUTED IN 100 ML SODIUM CHLORIDE (VEHICLE SOLUTION) (1000 MG,1 IN 1 D)
     Dates: start: 20241109, end: 20241109

REACTIONS (4)
  - Obstructive airways disorder [Recovering/Resolving]
  - Chest discomfort [Recovering/Resolving]
  - Nausea [Recovering/Resolving]
  - Vomiting [Recovering/Resolving]

NARRATIVE: CASE EVENT DATE: 20241109
